FAERS Safety Report 21835137 (Version 2)
Quarter: 2023Q1

REPORT INFORMATION
  Report Type: Report from Study
  Country: US (occurrence: US)
  Receive Date: 20230109
  Receipt Date: 20230308
  Transmission Date: 20230417
  Serious: No
  Sender: FDA-Public Use
  Company Number: US-ABBVIE-4232057

PATIENT
  Age: 56 Year
  Sex: Male
  Weight: 64 kg

DRUGS (28)
  1. HUMIRA [Suspect]
     Active Substance: ADALIMUMAB
     Indication: Psoriatic arthropathy
     Dosage: CITRATE FREE
     Route: 058
  2. HUMIRA [Suspect]
     Active Substance: ADALIMUMAB
     Dosage: CITRATE FREE, FORM STRENGTH: 40 MILLIGRAM
     Route: 058
     Dates: start: 20211001
  3. HUMIRA [Suspect]
     Active Substance: ADALIMUMAB
     Dosage: CITRATE FREE
     Route: 058
  4. HUMIRA [Suspect]
     Active Substance: ADALIMUMAB
     Dosage: CITRATE FREE
     Route: 058
  5. CLOBETASOL PROPIONATE [Concomitant]
     Active Substance: CLOBETASOL PROPIONATE
     Indication: Product used for unknown indication
     Dosage: 0.05%, 2 TO 3 TIMES DAILY
  6. LORATADINE [Concomitant]
     Active Substance: LORATADINE
     Indication: Product used for unknown indication
  7. GABAPENTIN [Concomitant]
     Active Substance: GABAPENTIN
     Indication: Product used for unknown indication
     Dosage: (ORAL PILL)
     Route: 048
  8. PRAVASTATIN [Concomitant]
     Active Substance: PRAVASTATIN
     Indication: Product used for unknown indication
     Dosage: (ORAL PILL), TAKE 1 TABLET BY MOUTH ONCE A DAY
     Route: 048
  9. LEUCOVORIN [Concomitant]
     Active Substance: LEUCOVORIN
     Indication: Product used for unknown indication
  10. ROPINIROLE [Concomitant]
     Active Substance: ROPINIROLE
     Indication: Product used for unknown indication
     Dosage: TIME INTERVAL: 0.14285714 DAYS
  11. SULFASALAZINE [Concomitant]
     Active Substance: SULFASALAZINE
     Indication: Product used for unknown indication
     Dosage: DR
  12. SILDENAFIL CITRATE [Concomitant]
     Active Substance: SILDENAFIL CITRATE
     Indication: Product used for unknown indication
  13. LEFLUNOMIDE [Concomitant]
     Active Substance: LEFLUNOMIDE
     Indication: Product used for unknown indication
  14. METFORMIN [Concomitant]
     Active Substance: METFORMIN HYDROCHLORIDE
     Indication: Product used for unknown indication
     Dosage: 1 TABLET BY MOUTH ONCE DAILY WITH FOOD
  15. FENOFIBRATE [Concomitant]
     Active Substance: FENOFIBRATE
     Indication: Product used for unknown indication
     Dosage: EC , PILL, TAKE 1 CAPSULE BY MOUTH DAILY
     Route: 048
  16. ACETAMINOPHEN [Concomitant]
     Active Substance: ACETAMINOPHEN
     Indication: Product used for unknown indication
     Dosage: 2 IN MORNING, 2 IN EVENING
  17. TAMSULOSIN HYDROCHLORIDE [Concomitant]
     Active Substance: TAMSULOSIN HYDROCHLORIDE
     Indication: Product used for unknown indication
     Dosage: 1 AT BEDTIME
  18. DESCOVY [Concomitant]
     Active Substance: EMTRICITABINE\TENOFOVIR ALAFENAMIDE FUMARATE
     Indication: Product used for unknown indication
     Dosage: 200-25MG
  19. DESONIDE [Concomitant]
     Active Substance: DESONIDE
     Indication: Product used for unknown indication
     Dosage: 0.05%, AS NEEDED
  20. NOVOLIN R [Concomitant]
     Active Substance: INSULIN HUMAN
     Indication: Product used for unknown indication
     Dosage: 0 TO 2 UNITS AT MEALS
  21. NOVOLIN 70/30 [Concomitant]
     Active Substance: INSULIN HUMAN
     Indication: Product used for unknown indication
     Dosage: 6-12 UNITS AT MEALS
  22. METHOTREXATE [Concomitant]
     Active Substance: METHOTREXATE
     Indication: Product used for unknown indication
     Dosage: (ORAL PILL), TAKE 7 TABLETS BY MOUTH ONCE WEEKLY
     Route: 048
  23. ACARBOSE [Concomitant]
     Active Substance: ACARBOSE
     Indication: Product used for unknown indication
     Dosage: (ORAL PILL), 1 TAB BY MOUTH 3 TIMES A DAY WITH MEALS
     Route: 048
  24. TRIAMCINOLONE [Concomitant]
     Active Substance: TRIAMCINOLONE
     Indication: Product used for unknown indication
     Dosage: 0.1%, AS NEEDED
  25. XELJANZ XR [Concomitant]
     Active Substance: TOFACITINIB CITRATE
     Indication: Product used for unknown indication
  26. HYDROXYCHLOROQUINE [Concomitant]
     Active Substance: HYDROXYCHLOROQUINE
     Indication: Product used for unknown indication
     Dosage: (ORAL PILL), TAKE 1 TABLET BY MOUTH TWICE A DAY
     Route: 048
  27. TIZANIDINE [Concomitant]
     Active Substance: TIZANIDINE
     Indication: Product used for unknown indication
  28. NOVOLIN N [Concomitant]
     Active Substance: INSULIN HUMAN
     Indication: Product used for unknown indication
     Dosage: 0 TO 8 UNITS AT BEDTIME

REACTIONS (12)
  - Prehypertension [Unknown]
  - Respiratory tract infection [Recovering/Resolving]
  - Drug effect less than expected [Unknown]
  - Influenza [Recovered/Resolved]
  - COVID-19 [Recovered/Resolved]
  - COVID-19 [Recovered/Resolved]
  - Influenza [Recovered/Resolved]
  - Syphilis [Recovered/Resolved]
  - Ear pain [Unknown]
  - COVID-19 [Recovered/Resolved]
  - Influenza [Unknown]
  - Bronchitis [Unknown]

NARRATIVE: CASE EVENT DATE: 20220426
